FAERS Safety Report 9667847 (Version 1)
Quarter: 2013Q4

REPORT INFORMATION
  Report Type: Report from Study
  Country: BR (occurrence: BR)
  Receive Date: 20131104
  Receipt Date: 20131104
  Transmission Date: 20140711
  Serious: Yes (Other)
  Sender: FDA-Public Use
  Company Number: PHHY2013BR124737

PATIENT
  Sex: Female
  Weight: 60 kg

DRUGS (4)
  1. ACLASTA [Suspect]
     Indication: OSTEOPENIA
     Dosage: 5 MG, UNK
     Route: 042
     Dates: start: 2011
  2. ACLASTA [Suspect]
     Dosage: 5 MG, UNK
     Route: 042
  3. SYNTHROID [Concomitant]
     Dosage: UNK UKN, UNK
     Dates: start: 2005
  4. CRESTOR [Concomitant]
     Dosage: UNK UKN, UNK
     Dates: start: 2013

REACTIONS (6)
  - Presyncope [Recovered/Resolved]
  - Retching [Recovered/Resolved]
  - Malaise [Recovered/Resolved]
  - Pyrexia [Recovered/Resolved]
  - Vomiting [Recovered/Resolved]
  - Pain [Recovered/Resolved]
